FAERS Safety Report 18968971 (Version 1)
Quarter: 2021Q1

REPORT INFORMATION
  Report Type: Spontaneous
  Country: JP (occurrence: JP)
  Receive Date: 20210304
  Receipt Date: 20210304
  Transmission Date: 20210420
  Serious: Yes (Other)
  Sender: FDA-Public Use
  Company Number: JP-PFIZER INC-2021208017

PATIENT
  Age: 74 Year
  Sex: Female

DRUGS (1)
  1. AZULFIDINE EN?TABS [Suspect]
     Active Substance: SULFASALAZINE

REACTIONS (1)
  - Rheumatoid arthritis [Unknown]
